FAERS Safety Report 6524155-8 (Version None)
Quarter: 2009Q4

REPORT INFORMATION
  Report Type: 
  Country: None (occurrence: None)
  Receive Date: 20091231
  Receipt Date: 20091218
  Transmission Date: 20100525
  Serious: Yes (Other)
  Sender: FDA-Public Use
  Company Number: GB-TYCO HEALTHCARE/MALLINCKRODT-T200902339

PATIENT
  Age: 47 Year

DRUGS (5)
  1. TEMAZEPAM [Suspect]
     Dosage: UNK
  2. FLUOXETINE [Suspect]
     Dosage: UNK
  3. CODEINE W/PARACETAMOL [Suspect]
     Dosage: 20 TABS PER DAY
  4. CODEINE [Suspect]
     Dosage: UNK
  5. DIAZEPAM [Concomitant]
     Dosage: UNK

REACTIONS (2)
  - DEAFNESS NEUROSENSORY [None]
  - MACROCYTOSIS [None]
